FAERS Safety Report 18972605 (Version 1)
Quarter: 2021Q1

REPORT INFORMATION
  Report Type: Spontaneous
  Country: US (occurrence: US)
  Receive Date: 20210304
  Receipt Date: 20210304
  Transmission Date: 20210420
  Serious: Yes (Hospitalization, Other)
  Sender: FDA-Public Use
  Company Number: None

PATIENT
  Age: 62 Year
  Sex: Female

DRUGS (15)
  1. PRAVASTATIN. [Concomitant]
     Active Substance: PRAVASTATIN
  2. TERBUTALINE [Concomitant]
     Active Substance: TERBUTALINE
  3. FEROSUL [Concomitant]
     Active Substance: FERROUS SULFATE
  4. PREDNISONE. [Concomitant]
     Active Substance: PREDNISONE
  5. SILDENAFIL. [Suspect]
     Active Substance: SILDENAFIL
     Indication: PULMONARY HYPERTENSION
     Route: 048
     Dates: start: 20210202
  6. TACROLIMUS. [Concomitant]
     Active Substance: TACROLIMUS
  7. SMZ?TMP [Concomitant]
     Active Substance: SULFAMETHOXAZOLE\TRIMETHOPRIM
  8. FLUCONAZOLE. [Concomitant]
     Active Substance: FLUCONAZOLE
  9. CALCITRIOL. [Concomitant]
     Active Substance: CALCITRIOL
  10. FLUDROCORT [Concomitant]
  11. CEPHALEXIN. [Concomitant]
     Active Substance: CEPHALEXIN
  12. MIDODRINE [Concomitant]
     Active Substance: MIDODRINE
  13. ASPIRIN. [Concomitant]
     Active Substance: ASPIRIN
  14. ADMELOG SOLO [Concomitant]
  15. MYCOPHENOLAT [Concomitant]
     Active Substance: MYCOPHENOLATE MOFETIL

REACTIONS (2)
  - Heart transplant [None]
  - Renal transplant [None]

NARRATIVE: CASE EVENT DATE: 20210121
